FAERS Safety Report 20381885 (Version 1)
Quarter: 2022Q1

REPORT INFORMATION
  Report Type: Report from Study
  Country: US (occurrence: US)
  Receive Date: 20220127
  Receipt Date: 20220127
  Transmission Date: 20220424
  Serious: Yes (Death, Life-Threatening, Hospitalization, Other)
  Sender: FDA-Public Use
  Company Number: US-Accord-251471

PATIENT
  Age: 74 Year
  Sex: Male
  Weight: 91.6 kg

DRUGS (4)
  1. MYCOPHENOLATE MOFETIL [Suspect]
     Active Substance: MYCOPHENOLATE MOFETIL
     Indication: Kidney transplant rejection
     Dosage: 500 MG TWICE DAILY
  2. TACROLIMUS [Suspect]
     Active Substance: TACROLIMUS
     Indication: Kidney transplant rejection
     Dosage: 5 MG IN THE MORNING AND 4 MG IN THE EVENING
  3. PREDNISONE [Suspect]
     Active Substance: PREDNISONE
     Indication: Kidney transplant rejection
     Dosage: 5 MG DAILY
  4. SULFAMETHOXAZOLE\TRIMETHOPRIM [Concomitant]
     Active Substance: SULFAMETHOXAZOLE\TRIMETHOPRIM
     Dosage: EVERY MONDAY, WEDNESDAY, AND FRIDAY

REACTIONS (4)
  - Pulmonary haemorrhage [Fatal]
  - Blastomycosis [Fatal]
  - Acute respiratory distress syndrome [Fatal]
  - Pneumonia [Fatal]
